FAERS Safety Report 8555582-5 (Version None)
Quarter: 2012Q3

REPORT INFORMATION
  Report Type: 
  Country: None (occurrence: None)
  Receive Date: 20120731
  Receipt Date: 20110726
  Transmission Date: 20120928
  Serious: Yes (Other)
  Sender: FDA-Public Use
  Company Number: US-ASTRAZENECA-2008UW27255

PATIENT
  Age: 22 Year
  Sex: Female
  Weight: 101.6 kg

DRUGS (16)
  1. XANAX [Concomitant]
     Dosage: 0.25 MG, 1 PO TID
     Dates: start: 20050126
  2. XANAX [Concomitant]
     Dosage: 0.25 MG, ONE PO BID AND 1/2 PO AT 2 PM
     Dates: start: 20050126
  3. EFFEXOR XR [Concomitant]
     Dosage: 37.5 MG, ONE PO QHS X 7 DAYS THEN INCREASE TO TWO PO AT HS
     Dates: start: 20050126
  4. NEURONTIN [Concomitant]
     Dosage: 100 MG, 1 TAB PO BID
     Route: 048
     Dates: start: 20050126
  5. ZOLOFT [Concomitant]
     Dosage: 100 MG, TWO PO QAM
     Dates: start: 20050126
  6. SEROQUEL [Suspect]
     Indication: DEPRESSION
     Route: 048
     Dates: start: 19920101, end: 20000101
  7. SEROQUEL [Suspect]
     Indication: BIPOLAR DISORDER
     Route: 048
     Dates: start: 19920101, end: 20000101
  8. DIFLUCAN [Concomitant]
     Route: 048
     Dates: start: 20050314
  9. SONATA [Concomitant]
     Indication: SLEEP DISORDER
     Dosage: 10 MG, ONE QHS PRN
     Dates: start: 20050126
  10. AMBIEN [Concomitant]
     Indication: SLEEP DISORDER
     Dosage: 10 MG, ONE QHS PRN
     Dates: start: 20050126
  11. LOPRESSOR [Concomitant]
     Dates: start: 20050126
  12. ABILIFY [Concomitant]
  13. WELLBUTRIN XL [Concomitant]
     Dates: start: 20050314
  14. XANAX [Concomitant]
     Dosage: 0.25 1/2 PO BID AND ONE PO AT HS
     Dates: start: 20050126
  15. ZOLOFT [Concomitant]
     Dosage: 100 MG,1 1/2 PO QAM
     Dates: start: 20050126
  16. ZOLOFT [Concomitant]
     Dosage: 100 MG, TWO PO AT HS
     Dates: start: 20050126

REACTIONS (17)
  - CHEST PAIN [None]
  - NEUROFIBROMATOSIS [None]
  - HYPERLIPIDAEMIA [None]
  - OBESITY [None]
  - TOOTH DISORDER [None]
  - HYPOAESTHESIA [None]
  - DIABETES MELLITUS INADEQUATE CONTROL [None]
  - CARDIAC DISORDER [None]
  - BLOOD CHOLESTEROL INCREASED [None]
  - MITRAL VALVE PROLAPSE [None]
  - ARTHROPATHY [None]
  - TYPE 2 DIABETES MELLITUS [None]
  - TACHYCARDIA [None]
  - PANCREATITIS [None]
  - BLOOD TRIGLYCERIDES INCREASED [None]
  - WEIGHT INCREASED [None]
  - EYE DISORDER [None]
